FAERS Safety Report 7563294-X (Version None)
Quarter: 2011Q2

REPORT INFORMATION
  Report Type: 
  Country: None (occurrence: None)
  Receive Date: 20110622
  Receipt Date: 20090623
  Transmission Date: 20111010
  Serious: Yes (Hospitalization)
  Sender: FDA-Public Use
  Company Number: A0794441A

PATIENT
  Age: 58 Year
  Sex: Male

DRUGS (1)
  1. AVANDIA [Suspect]
     Dosage: 4MG PER DAY
     Route: 048
     Dates: start: 20000405, end: 20060323

REACTIONS (6)
  - MYOCARDIAL INFARCTION [None]
  - BALANCE DISORDER [None]
  - CARDIAC FAILURE CONGESTIVE [None]
  - DIPLEGIA [None]
  - CARDIAC ARREST [None]
  - AMNESIA [None]
